FAERS Safety Report 21449310 (Version 1)
Quarter: 2022Q4

REPORT INFORMATION
  Report Type: Spontaneous
  Country: JP (occurrence: JP)
  Receive Date: 20221013
  Receipt Date: 20221013
  Transmission Date: 20230112
  Serious: Yes (Hospitalization)
  Sender: FDA-Public Use
  Company Number: JP-BAYER-2022A023779

PATIENT
  Age: 6 Decade
  Sex: Male
  Weight: 90 kg

DRUGS (2)
  1. RIVAROXABAN [Suspect]
     Active Substance: RIVAROXABAN
     Indication: Atrial fibrillation
     Dosage: 15 MG, QD
     Route: 048
  2. BISOPROLOL [Concomitant]
     Active Substance: BISOPROLOL
     Dosage: 2.5 MG, QD
     Route: 048

REACTIONS (16)
  - Cardiac failure acute [Unknown]
  - Oedema peripheral [Unknown]
  - Dyspnoea exertional [Unknown]
  - Dyspnoea exertional [Unknown]
  - Dyspnoea [Unknown]
  - Eating disorder [Unknown]
  - Cardiomegaly [Unknown]
  - Left ventricular dysfunction [Unknown]
  - Jugular vein distension [Unknown]
  - Abdominal distension [Unknown]
  - Peripheral coldness [Unknown]
  - Malaise [Unknown]
  - Respiratory rate increased [Unknown]
  - Heart rate increased [Unknown]
  - Heart sounds abnormal [Unknown]
  - Wheezing [Unknown]
